FAERS Safety Report 12704567 (Version 1)
Quarter: 2016Q3

REPORT INFORMATION
  Report Type: Spontaneous
  Country: US (occurrence: US)
  Receive Date: 20160831
  Receipt Date: 20160831
  Transmission Date: 20161109
  Serious: No
  Sender: FDA-Public Use
  Company Number: US-SA-2016SA052007

PATIENT
  Sex: Female

DRUGS (3)
  1. IRBESARTAN. [Concomitant]
     Active Substance: IRBESARTAN
     Dates: start: 2006
  2. AVAPRO [Suspect]
     Active Substance: IRBESARTAN
     Route: 065
  3. AVAPRO [Suspect]
     Active Substance: IRBESARTAN
     Route: 065
     Dates: start: 2006

REACTIONS (4)
  - Constipation [Unknown]
  - Gastrointestinal tract irritation [Unknown]
  - Diarrhoea [Unknown]
  - Vomiting [Unknown]
